FAERS Safety Report 17502172 (Version 10)
Quarter: 2021Q2

REPORT INFORMATION
  Report Type: Report from Study
  Country: None (occurrence: US)
  Receive Date: 20200305
  Receipt Date: 20210521
  Transmission Date: 20210716
  Serious: Yes (Hospitalization, Other)
  Sender: FDA-Public Use
  Company Number: US-ABBVIE-20P-163-3303193-00

PATIENT
  Age: 73 Year
  Sex: Female

DRUGS (12)
  1. IMBRUVICA [Suspect]
     Active Substance: IBRUTINIB
     Indication: B-CELL SMALL LYMPHOCYTIC LYMPHOMA
     Route: 048
  2. IMBRUVICA [Suspect]
     Active Substance: IBRUTINIB
     Route: 048
     Dates: start: 20191216
  3. MUPIROCIN. [Concomitant]
     Active Substance: MUPIROCIN
     Indication: WOUND
  4. ZITHROMAX [Concomitant]
     Active Substance: AZITHROMYCIN DIHYDRATE
     Indication: WOUND
  5. IMBRUVICA [Suspect]
     Active Substance: IBRUTINIB
     Route: 048
     Dates: start: 20191216
  6. IMBRUVICA [Suspect]
     Active Substance: IBRUTINIB
     Route: 048
  7. IMBRUVICA [Suspect]
     Active Substance: IBRUTINIB
     Route: 048
  8. HYDROXYZINE [Concomitant]
     Active Substance: HYDROXYZINE HYDROCHLORIDE
     Indication: PRODUCT USED FOR UNKNOWN INDICATION
  9. ROSUVASTATIN. [Concomitant]
     Active Substance: ROSUVASTATIN
     Indication: BLOOD CHOLESTEROL
  10. MIRALAX [Concomitant]
     Active Substance: POLYETHYLENE GLYCOL 3350
     Indication: PRODUCT USED FOR UNKNOWN INDICATION
  11. HUMALOG [Concomitant]
     Active Substance: INSULIN LISPRO
     Indication: PRODUCT USED FOR UNKNOWN INDICATION
     Dosage: TOOK 3 UNITS AND THEN A SLIDING SCALE
  12. IMBRUVICA [Suspect]
     Active Substance: IBRUTINIB
     Indication: B-CELL SMALL LYMPHOCYTIC LYMPHOMA
     Route: 048
     Dates: start: 20191213

REACTIONS (29)
  - Surgery [Unknown]
  - Haemorrhage urinary tract [Unknown]
  - Cellulitis [Unknown]
  - Discoloured vomit [Recovered/Resolved]
  - Fall [Unknown]
  - Gastrooesophageal reflux disease [Unknown]
  - Urinary incontinence [Not Recovered/Not Resolved]
  - Vomiting [Unknown]
  - Vomiting [Unknown]
  - Nasopharyngitis [Not Recovered/Not Resolved]
  - Diarrhoea [Unknown]
  - Fear [Unknown]
  - Depression [Unknown]
  - Heart rate decreased [Unknown]
  - Dyspepsia [Recovered/Resolved]
  - Cough [Not Recovered/Not Resolved]
  - Nausea [Not Recovered/Not Resolved]
  - Hypersomnia [Unknown]
  - Paranasal sinus hypersecretion [Not Recovered/Not Resolved]
  - Memory impairment [Unknown]
  - Sputum discoloured [Unknown]
  - Heart rate abnormal [Unknown]
  - Haematoma [Unknown]
  - Blood pressure abnormal [Not Recovered/Not Resolved]
  - Urinary bladder suspension [Recovering/Resolving]
  - Abdominal distension [Unknown]
  - Hypoacusis [Unknown]
  - Adverse drug reaction [Unknown]
  - Peripheral swelling [Unknown]

NARRATIVE: CASE EVENT DATE: 20200227
